FAERS Safety Report 9861396 (Version 2)
Quarter: 2014Q1

REPORT INFORMATION
  Report Type: Report from Study
  Country: FR (occurrence: FR)
  Receive Date: 20140203
  Receipt Date: 20140203
  Transmission Date: 20141002
  Serious: Yes (Hospitalization, Other)
  Sender: FDA-Public Use
  Company Number: FR-ROCHE-1162559

PATIENT
  Age: 63 Year
  Sex: Female

DRUGS (20)
  1. RITUXIMAB [Suspect]
     Indication: RHEUMATOID ARTHRITIS
     Route: 041
     Dates: start: 20080403
  2. RITUXIMAB [Suspect]
     Dosage: 1G (D15)
     Route: 041
     Dates: start: 20080417
  3. RITUXIMAB [Suspect]
     Route: 041
     Dates: start: 20090505
  4. RITUXIMAB [Suspect]
     Route: 041
     Dates: start: 20090728
  5. RITUXIMAB [Suspect]
     Route: 041
     Dates: start: 20100114
  6. RITUXIMAB [Suspect]
     Route: 041
     Dates: start: 20100223
  7. RITUXIMAB [Suspect]
     Route: 041
     Dates: start: 20100909
  8. RITUXIMAB [Suspect]
     Route: 042
     Dates: start: 20100922
  9. RITUXIMAB [Suspect]
     Route: 041
     Dates: start: 20110826
  10. RITUXIMAB [Suspect]
     Dosage: D15
     Route: 041
     Dates: start: 20110908
  11. RITUXIMAB [Suspect]
     Route: 041
     Dates: start: 20120605
  12. RITUXIMAB [Suspect]
     Route: 041
     Dates: start: 20120619
  13. RITUXIMAB [Suspect]
     Route: 041
     Dates: start: 20121217
  14. CORTANCYL [Concomitant]
     Route: 065
     Dates: start: 20080417
  15. CORTANCYL [Concomitant]
     Route: 065
     Dates: start: 20090505
  16. CORTANCYL [Concomitant]
     Route: 065
     Dates: start: 20090728
  17. CORTANCYL [Concomitant]
     Route: 065
     Dates: start: 20100922
  18. CORTANCYL [Concomitant]
     Route: 065
     Dates: start: 20110908
  19. CORTANCYL [Concomitant]
     Route: 065
     Dates: start: 20120619
  20. CORTANCYL [Concomitant]
     Route: 065
     Dates: start: 20121217

REACTIONS (6)
  - Sepsis [Recovered/Resolved]
  - Osteitis [Recovered/Resolved]
  - Fractured sacrum [Recovered/Resolved]
  - Pericarditis [Recovered/Resolved]
  - Acute pulmonary oedema [Recovered/Resolved]
  - Acute coronary syndrome [Recovered/Resolved]
